FAERS Safety Report 8244414-0 (Version None)
Quarter: 2012Q1

REPORT INFORMATION
  Report Type: 
  Country: None (occurrence: None)
  Receive Date: 20120329
  Receipt Date: 20120323
  Transmission Date: 20120608
  Serious: Yes (Death, Other)
  Sender: FDA-Public Use
  Company Number: US-CELGENEUS-163-21880-12023132

PATIENT
  Sex: Male

DRUGS (9)
  1. FLUNISOLIDE [Concomitant]
     Route: 065
  2. REVLIMID [Suspect]
     Indication: MULTIPLE MYELOMA
     Dosage: 25 MILLIGRAM
     Route: 048
     Dates: start: 20120201
  3. ASPIRIN [Concomitant]
     Dosage: 81 MILLIGRAM
     Route: 065
  4. LEVOFLOXACIN [Concomitant]
     Route: 065
  5. LORTAB [Concomitant]
     Route: 065
  6. DILTIAZEM HCL [Concomitant]
     Route: 065
  7. DOXAZOSIN MESYLATE [Concomitant]
     Route: 065
  8. DEXAMETHASONE [Concomitant]
     Route: 065
  9. DIPHENHYDRAMINE HCL [Concomitant]
     Route: 065

REACTIONS (2)
  - SEPSIS [None]
  - RENAL FAILURE [None]
